FAERS Safety Report 18458452 (Version 1)
Quarter: 2020Q4

REPORT INFORMATION
  Report Type: Spontaneous
  Country: DE (occurrence: DE)
  Receive Date: 20201103
  Receipt Date: 20201103
  Transmission Date: 20210114
  Serious: Yes (Hospitalization, Other)
  Sender: FDA-Public Use
  Company Number: NVSC2020DE287642

PATIENT
  Age: 5 Year
  Sex: Female
  Weight: 32 kg

DRUGS (4)
  1. CANDECOR [Suspect]
     Active Substance: CANDESARTAN CILEXETIL
     Indication: ACCIDENTAL EXPOSURE TO PRODUCT BY CHILD
     Dosage: 8 MG, QD (SINGLE DOSE)
     Route: 048
     Dates: start: 20201014, end: 20201014
  2. TAPENTADOL [Suspect]
     Active Substance: TAPENTADOL
     Indication: ACCIDENTAL EXPOSURE TO PRODUCT BY CHILD
     Dosage: 50 MG, QD (SINGLE DOSE)
     Route: 048
     Dates: start: 20201014, end: 20201014
  3. BISOPROLOL [Suspect]
     Active Substance: BISOPROLOL
     Indication: ACCIDENTAL EXPOSURE TO PRODUCT BY CHILD
     Dosage: 5 MG, QD  (SINGLE DOSE)
     Route: 048
     Dates: start: 20201014, end: 20201014
  4. APIXABAN [Suspect]
     Active Substance: APIXABAN
     Indication: ACCIDENTAL EXPOSURE TO PRODUCT BY CHILD
     Dosage: 5 MG, QD (SINGLE DOSE)
     Route: 048
     Dates: start: 20201014, end: 20201014

REACTIONS (2)
  - Miosis [Recovered/Resolved]
  - Accidental exposure to product by child [Recovered/Resolved]

NARRATIVE: CASE EVENT DATE: 20201014
